FAERS Safety Report 10192463 (Version 1)
Quarter: 2014Q2

REPORT INFORMATION
  Report Type: Spontaneous
  Country: IT (occurrence: IT)
  Receive Date: 20140523
  Receipt Date: 20140523
  Transmission Date: 20141212
  Serious: Yes (Other)
  Sender: FDA-Public Use
  Company Number: IT-WATSON-2014-10973

PATIENT
  Age: 63 Year
  Sex: Male

DRUGS (1)
  1. PRAMIPEXOLE (UNKNOWN) [Suspect]
     Indication: RESTLESS LEGS SYNDROME
     Dosage: 0.25 MG, DAILY
     Route: 065

REACTIONS (1)
  - Substance-induced psychotic disorder [Recovering/Resolving]
